FAERS Safety Report 7365243-6 (Version None)
Quarter: 2011Q1

REPORT INFORMATION
  Report Type: 
  Country: None (occurrence: None)
  Receive Date: 20110322
  Receipt Date: 20110314
  Transmission Date: 20110831
  Serious: Yes (Death, Hospitalization, Other)
  Sender: FDA-Public Use
  Company Number: PL-BIOGENIDEC-2011BI001181

PATIENT
  Age: 53 Year
  Sex: Male
  Weight: 90 kg

DRUGS (11)
  1. TICLO [Concomitant]
     Indication: MYOCARDIAL ISCHAEMIA
     Route: 048
     Dates: start: 19910101
  2. ZOCOR [Concomitant]
     Dates: start: 20101210
  3. OMACOR [Concomitant]
     Dates: start: 20101210
  4. NOLPAZA [Concomitant]
     Dates: start: 20101210
  5. BETALOC [Concomitant]
     Dates: start: 20101210
  6. TYSABRI [Suspect]
     Indication: RELAPSING-REMITTING MULTIPLE SCLEROSIS
     Route: 042
     Dates: start: 20100526
  7. INSULIN HUMULIN [Concomitant]
     Indication: DIABETES MELLITUS
     Dates: start: 19910101
  8. SIRDALUD [Concomitant]
     Dates: start: 20101210
  9. TRITACE [Concomitant]
     Dates: start: 20101210
  10. INSPRA [Concomitant]
     Dates: start: 20101210
  11. DIUVER [Concomitant]
     Dates: start: 20101210

REACTIONS (2)
  - SUDDEN CARDIAC DEATH [None]
  - AORTIC VALVE STENOSIS [None]
